FAERS Safety Report 5327316-9 (Version None)
Quarter: 2007Q2

REPORT INFORMATION
  Report Type: 
  Country: None (occurrence: None)
  Receive Date: 20070511
  Receipt Date: 20070502
  Transmission Date: 20071010
  Serious: Yes (Death)
  Sender: FDA-Public Use
  Company Number: S07-USA-01860-01

PATIENT
  Age: 58 Year
  Sex: Female

DRUGS (4)
  1. LEXAPRO [Suspect]
  2. CYMBALTA [Suspect]
  3. EFFEXOR [Suspect]
  4. XANAX [Suspect]

REACTIONS (3)
  - COMPLETED SUICIDE [None]
  - GUN SHOT WOUND [None]
  - INTENTIONAL SELF-INJURY [None]
